FAERS Safety Report 23716856 (Version 1)
Quarter: 2024Q2

REPORT INFORMATION
  Report Type: Report from Study
  Country: MX (occurrence: MX)
  Receive Date: 20240408
  Receipt Date: 20240408
  Transmission Date: 20240716
  Serious: Yes (Hospitalization)
  Sender: FDA-Public Use
  Company Number: MX-002147023-NVSC2023MX078139

PATIENT
  Sex: Male

DRUGS (3)
  1. TASIGNA [Suspect]
     Active Substance: NILOTINIB
     Indication: Chronic myeloid leukaemia
     Dosage: 1 DOSAGE FORM, Q72H (EVERY 72 HOURS)
     Route: 048
     Dates: end: 20230322
  2. TASIGNA [Suspect]
     Active Substance: NILOTINIB
     Dosage: UNK, UNKNOWN, STOPPED IN JAN
     Route: 048
  3. TASIGNA [Suspect]
     Active Substance: NILOTINIB
     Dosage: ONE DAY YES, ONE DAY NOT
     Route: 048
     Dates: start: 202401

REACTIONS (6)
  - Pneumonia [Recovering/Resolving]
  - Body temperature increased [Recovering/Resolving]
  - Platelet count decreased [Unknown]
  - Inappropriate schedule of product administration [Unknown]
  - Influenza [Unknown]
  - Off label use [Unknown]
